FAERS Safety Report 18086491 (Version 2)
Quarter: 2021Q2

REPORT INFORMATION
  Report Type: Spontaneous
  Country: US (occurrence: US)
  Receive Date: 20200728
  Receipt Date: 20210629
  Transmission Date: 20210717
  Serious: No
  Sender: FDA-Public Use
  Company Number: US-TEVA-2020-US-1806288

PATIENT
  Sex: Female

DRUGS (2)
  1. METOPROLOL SUCCINATE ACTAVIS [Suspect]
     Active Substance: METOPROLOL SUCCINATE
     Indication: BLOOD PRESSURE ABNORMAL
     Route: 065
  2. METOPROLOL SUCCINATE. [Suspect]
     Active Substance: METOPROLOL SUCCINATE
     Indication: BLOOD PRESSURE ABNORMAL
     Route: 065

REACTIONS (5)
  - Agitation [Unknown]
  - Drug ineffective [Unknown]
  - Feeling abnormal [Unknown]
  - Feeling jittery [Unknown]
  - Product substitution issue [Unknown]
